FAERS Safety Report 6217298-X (Version None)
Quarter: 2009Q2

REPORT INFORMATION
  Report Type: 
  Country: None (occurrence: None)
  Receive Date: 20090604
  Receipt Date: 20090604
  Transmission Date: 20091009
  Serious: Yes (Life-Threatening, Hospitalization)
  Sender: FDA-Public Use
  Company Number: None

PATIENT
  Sex: Male
  Weight: 108 kg

DRUGS (1)
  1. ARGATROBAN [Suspect]
     Indication: HEPARIN-INDUCED THROMBOCYTOPENIA
     Dosage: 2MCG/KG/MIN CONTINUOUS IV DRIP
     Route: 041

REACTIONS (2)
  - CARDIO-RESPIRATORY ARREST [None]
  - ELECTROMECHANICAL DISSOCIATION [None]
